FAERS Safety Report 5192206-1 (Version None)
Quarter: 2006Q4

REPORT INFORMATION
  Report Type: 
  Country: None (occurrence: None)
  Receive Date: 20061220
  Receipt Date: 20061211
  Transmission Date: 20070319
  Serious: Yes (Other)
  Sender: FDA-Public Use
  Company Number: 2006150486

PATIENT
  Age: 58 Year
  Sex: Female

DRUGS (2)
  1. LYRICA [Suspect]
     Indication: ANKYLOSING SPONDYLITIS
     Dosage: 150 MG (75 MG, 2 IN 1 D), ORAL
     Route: 048
     Dates: start: 20061101
  2. METHADONE HCL [Suspect]
     Indication: PAIN
     Dosage: 4 MG
     Dates: start: 20060401

REACTIONS (7)
  - ACTIVITIES OF DAILY LIVING IMPAIRED [None]
  - ANKYLOSING SPONDYLITIS [None]
  - DIZZINESS [None]
  - DRUG INTERACTION [None]
  - FEELING ABNORMAL [None]
  - GRIP STRENGTH DECREASED [None]
  - SOMNOLENCE [None]
